FAERS Safety Report 18559892 (Version 1)
Quarter: 2020Q4

REPORT INFORMATION
  Report Type: Spontaneous
  Country: IT (occurrence: IT)
  Receive Date: 20201130
  Receipt Date: 20201130
  Transmission Date: 20210114
  Serious: Yes (Hospitalization)
  Sender: FDA-Public Use
  Company Number: IT-PFIZER INC-2020367848

PATIENT
  Age: 9 Year
  Sex: Female
  Weight: 25 kg

DRUGS (5)
  1. GRISOVINA FP [Concomitant]
  2. ZOVIRAX [Concomitant]
     Active Substance: ACYCLOVIR
     Dosage: 1500 MG
     Dates: start: 20200731, end: 20200807
  3. DALACIN C [Suspect]
     Active Substance: CLINDAMYCIN
     Indication: DERMO-HYPODERMITIS
     Dosage: 450 MG, DAILY
     Route: 048
     Dates: start: 20200807, end: 20200811
  4. CEFTRIAXONE. [Concomitant]
     Active Substance: CEFTRIAXONE
     Dosage: 2 G
     Dates: start: 20200731, end: 20200807
  5. TARGOSID [Concomitant]
     Active Substance: TEICOPLANIN
     Dosage: 200 MG
     Dates: start: 20200801, end: 20200807

REACTIONS (5)
  - Rash morbilliform [Recovered/Resolved]
  - Thrombocytopenia [Recovered/Resolved]
  - Leukopenia [Recovered/Resolved]
  - Hyperpyrexia [Recovered/Resolved]
  - Hypertransaminasaemia [Recovered/Resolved]

NARRATIVE: CASE EVENT DATE: 20200812
